FAERS Safety Report 16599638 (Version 4)
Quarter: 2019Q4

REPORT INFORMATION
  Report Type: Report from Study
  Country: CA (occurrence: CA)
  Receive Date: 20190719
  Receipt Date: 20191231
  Transmission Date: 20200122
  Serious: Yes (Life-Threatening, Hospitalization)
  Sender: FDA-Public Use
  Company Number: CA-REGENERON PHARMACEUTICALS, INC.-2019-43304

PATIENT

DRUGS (8)
  1. CEMIPLIMAB [Suspect]
     Active Substance: CEMIPLIMAB
     Dosage: UNK UNK, QCY
     Route: 042
     Dates: start: 20190822, end: 20190822
  2. CEMIPLIMAB [Suspect]
     Active Substance: CEMIPLIMAB
     Dosage: UNK UNK, QCY
     Route: 042
     Dates: start: 20190801, end: 20190801
  3. CEMIPLIMAB [Suspect]
     Active Substance: CEMIPLIMAB
     Dosage: UNK UNK, QCY
     Route: 042
     Dates: start: 20191114, end: 20191114
  4. CEMIPLIMAB [Suspect]
     Active Substance: CEMIPLIMAB
     Dosage: UNK UNK, QCY
     Route: 042
     Dates: start: 20191205, end: 20191205
  5. CEMIPLIMAB [Suspect]
     Active Substance: CEMIPLIMAB
     Dosage: UNK UNK, QCY
     Route: 042
     Dates: start: 20190912, end: 20190912
  6. CEMIPLIMAB [Suspect]
     Active Substance: CEMIPLIMAB
     Dosage: UNK UNK, QCY
     Route: 042
     Dates: start: 20191003, end: 20191003
  7. CEMIPLIMAB [Suspect]
     Active Substance: CEMIPLIMAB
     Indication: SKIN SQUAMOUS CELL CARCINOMA METASTATIC
     Dosage: UNK UNK, QCY
     Route: 042
     Dates: start: 20190605, end: 20190605
  8. CEMIPLIMAB [Suspect]
     Active Substance: CEMIPLIMAB
     Dosage: UNK UNK, QCY
     Route: 042
     Dates: start: 20191024, end: 20191024

REACTIONS (10)
  - Weight decreased [Not Recovered/Not Resolved]
  - Herpes zoster [Recovering/Resolving]
  - Malaise [Unknown]
  - Therapy cessation [Not Recovered/Not Resolved]
  - Transient ischaemic attack [Recovered/Resolved]
  - Fatigue [Unknown]
  - Hospitalisation [Recovered/Resolved]
  - Asthenia [Unknown]
  - Haemoglobin abnormal [Recovered/Resolved]
  - Dry mouth [Not Recovered/Not Resolved]

NARRATIVE: CASE EVENT DATE: 20190605
